FAERS Safety Report 7863883-9 (Version None)
Quarter: 2011Q4

REPORT INFORMATION
  Report Type: 
  Country: None (occurrence: None)
  Receive Date: 20111028
  Receipt Date: 20111018
  Transmission Date: 20120403
  Serious: No
  Sender: FDA-Public Use
  Company Number: US-BIOGENIDEC-2011BI039932

PATIENT
  Age: 60 Year
  Sex: Male

DRUGS (2)
  1. TYSABRI [Suspect]
     Indication: MULTIPLE SCLEROSIS
     Route: 042
     Dates: start: 20080107
  2. AMPYRA [Concomitant]
     Dates: start: 20110921, end: 20111011

REACTIONS (2)
  - MUSCULOSKELETAL DISORDER [None]
  - MUSCULAR WEAKNESS [None]
